FAERS Safety Report 16314231 (Version 2)
Quarter: 2019Q2

REPORT INFORMATION
  Report Type: Spontaneous
  Country: JP (occurrence: JP)
  Receive Date: 20190515
  Receipt Date: 20190521
  Transmission Date: 20190711
  Serious: Yes (Other)
  Sender: FDA-Public Use
  Company Number: JP-JNJFOC-20190514006

PATIENT
  Sex: Male

DRUGS (1)
  1. RISPERDAL CONSTA [Suspect]
     Active Substance: RISPERIDONE
     Indication: PRODUCT USED FOR UNKNOWN INDICATION
     Route: 030

REACTIONS (5)
  - Exposure to contaminated device [Unknown]
  - Device related infection [Unknown]
  - Injury associated with device [Unknown]
  - Needle issue [Unknown]
  - Product administration error [Unknown]

NARRATIVE: CASE EVENT DATE: 2009
